FAERS Safety Report 10116070 (Version 2)
Quarter: 2015Q1

REPORT INFORMATION
  Report Type: Other
  Country: US (occurrence: US)
  Receive Date: 20140426
  Receipt Date: 20150203
  Transmission Date: 20150720
  Serious: Yes (Hospitalization, Other)
  Sender: FDA-Public Use
  Company Number: US-GSKPPD-2014GSK015707

PATIENT
  Age: 73 Year
  Sex: Male
  Weight: 78.54 kg

DRUGS (7)
  1. AVANDIA [Suspect]
     Active Substance: ROSIGLITAZONE MALEATE
     Indication: DIABETES MELLITUS
     Dosage: DATES OF AVANDIA USE COULD NOT BE CONFIRMED IN RECORDS REVIEWED
     Route: 048
  2. PLAVIX [Concomitant]
     Active Substance: CLOPIDOGREL BISULFATE
  3. ZOCOR [Concomitant]
     Active Substance: SIMVASTATIN
  4. ISOSORBIDE [Concomitant]
     Active Substance: ISOSORBIDE
  5. ATENOLOL. [Concomitant]
     Active Substance: ATENOLOL
  6. ASPIRIN. [Concomitant]
     Active Substance: ASPIRIN
  7. LISINOPRIL. [Concomitant]
     Active Substance: LISINOPRIL

REACTIONS (2)
  - Arteriosclerosis coronary artery [Recovered/Resolved]
  - Angina unstable [Recovered/Resolved]

NARRATIVE: CASE EVENT DATE: 20060728
